FAERS Safety Report 19795700 (Version 4)
Quarter: 2022Q3

REPORT INFORMATION
  Report Type: Spontaneous
  Country: SI (occurrence: SI)
  Receive Date: 20210907
  Receipt Date: 20220727
  Transmission Date: 20221026
  Serious: Yes (Death, Life-Threatening, Hospitalization, Other)
  Sender: FDA-Public Use
  Company Number: SI-MLMSERVICE-20210818-3058035-1

PATIENT
  Age: 46 Year
  Sex: Female

DRUGS (5)
  1. ONDANSETRON [Suspect]
     Active Substance: ONDANSETRON
     Indication: Abdominal pain
     Dosage: ADMINISTERED BY ELASTOMERIC PUMP
     Dates: start: 202008, end: 2020
  2. DEXAMETHASONE [Concomitant]
     Active Substance: DEXAMETHASONE
     Indication: Abdominal pain
     Dates: start: 202008
  3. MORPHINE [Concomitant]
     Active Substance: MORPHINE
     Indication: Abdominal pain
     Dates: start: 202008
  4. XYLOCAINE [Concomitant]
     Active Substance: LIDOCAINE HYDROCHLORIDE
     Indication: Abdominal pain
     Dates: start: 202008
  5. ESKETAMINE [Concomitant]
     Active Substance: ESKETAMINE
     Indication: Abdominal pain
     Dates: start: 202008

REACTIONS (5)
  - Stevens-Johnson syndrome [Fatal]
  - Hepatic failure [Fatal]
  - Pneumonia mycoplasmal [Fatal]
  - Sepsis [Fatal]
  - Off label use [Unknown]

NARRATIVE: CASE EVENT DATE: 20200101
